FAERS Safety Report 18305071 (Version 1)
Quarter: 2020Q3

REPORT INFORMATION
  Report Type: Other
  Country: NL (occurrence: NL)
  Receive Date: 20200924
  Receipt Date: 20200924
  Transmission Date: 20201103
  Serious: Yes (Other)
  Sender: FDA-Public Use
  Company Number: NL-ROCHE-2682457

PATIENT
  Age: 50 Year
  Sex: Male

DRUGS (2)
  1. ACTILYSE [Suspect]
     Active Substance: ALTEPLASE
     Indication: THROMBOSIS
  2. ACTILYSE [Suspect]
     Active Substance: ALTEPLASE
     Indication: ILIAC ARTERY OCCLUSION
     Route: 065

REACTIONS (2)
  - Thrombosis [Unknown]
  - Ischaemia [Unknown]
